FAERS Safety Report 4423393-8 (Version None)
Quarter: 2004Q3

REPORT INFORMATION
  Report Type: 
  Country: None (occurrence: None)
  Receive Date: 20040811
  Receipt Date: 20040804
  Transmission Date: 20050211
  Serious: Yes (Hospitalization, Other)
  Sender: FDA-Public Use
  Company Number: PHRM2004FR02517

PATIENT
  Age: 33 Year
  Sex: Female

DRUGS (4)
  1. NEORAL [Suspect]
     Indication: RENAL TRANSPLANT
     Route: 048
  2. PREDNISONE TAB [Suspect]
     Indication: RENAL TRANSPLANT
  3. CELLCEPT [Suspect]
     Route: 048
  4. SECTRAL [Concomitant]
     Dosage: 400 MG, BID
     Route: 048

REACTIONS (4)
  - ANAEMIA [None]
  - CAESAREAN SECTION [None]
  - DRUG EXPOSURE DURING PREGNANCY [None]
  - HYPERTENSION [None]
